FAERS Safety Report 7265508-2 (Version None)
Quarter: 2011Q1

REPORT INFORMATION
  Report Type: 
  Country: None (occurrence: None)
  Receive Date: 20110131
  Receipt Date: 20110119
  Transmission Date: 20110831
  Serious: Yes (Hospitalization)
  Sender: FDA-Public Use
  Company Number: JP-ROCHE-755576

PATIENT
  Age: 33 Year
  Sex: Female
  Weight: 37 kg

DRUGS (7)
  1. CYCLOSPORINE [Concomitant]
     Dosage: DOSAGE IS UNCERTAIN.
     Route: 065
  2. METILPREDNISOLONE [Concomitant]
     Dosage: DOSAGE IS UNCERTAIN.
  3. CELLCEPT [Suspect]
     Dosage: DOSE DECREASED
     Route: 048
  4. CELLCEPT [Suspect]
     Dosage: DOSE DECREASED
     Route: 048
  5. BASILIXIMAB [Concomitant]
     Dosage: BASILIXIMAB(GENETICAL RECOMBINATION). DOSAGE IS UNCERTAIN.
     Route: 041
  6. HORMONE NOS [Concomitant]
     Dosage: ADRENAL HORMONE PREPARATIONS. DOSAGE IS UNCERTAIN.
  7. CELLCEPT [Suspect]
     Dosage: DOSE DECREASED
     Route: 048

REACTIONS (1)
  - FOCAL SEGMENTAL GLOMERULOSCLEROSIS [None]
